FAERS Safety Report 17392409 (Version 2)
Quarter: 2020Q2

REPORT INFORMATION
  Report Type: Report from Study
  Country: AU (occurrence: AU)
  Receive Date: 20200207
  Receipt Date: 20200514
  Transmission Date: 20200713
  Serious: Yes (Hospitalization, Other)
  Sender: FDA-Public Use
  Company Number: AU-TOLMAR, INC.-2019AU007965

PATIENT
  Sex: Male

DRUGS (3)
  1. ELIGARD [Suspect]
     Active Substance: LEUPROLIDE ACETATE
     Indication: PROSTATE CANCER
     Dosage: 22.5 MG, Q3MONTHS
     Route: 058
     Dates: start: 20160517
  2. CHEMOTHERAPEUTICS [Suspect]
     Active Substance: UNSPECIFIED INGREDIENT
     Indication: PRODUCT USED FOR UNKNOWN INDICATION
     Dosage: UNK
     Route: 065
  3. FIRMAGON [Concomitant]
     Active Substance: DEGARELIX ACETATE
     Indication: PRODUCT USED FOR UNKNOWN INDICATION
     Route: 065

REACTIONS (12)
  - Neck pain [Unknown]
  - Cough [Not Recovered/Not Resolved]
  - Brain neoplasm malignant [Not Recovered/Not Resolved]
  - Metastases to bone [Unknown]
  - Pain [Not Recovered/Not Resolved]
  - Fatigue [Unknown]
  - Multiple sclerosis relapse [Unknown]
  - General physical health deterioration [Not Recovered/Not Resolved]
  - Muscle atrophy [Unknown]
  - Mobility decreased [Not Recovered/Not Resolved]
  - Asthenia [Unknown]
  - Arthralgia [Unknown]
